FAERS Safety Report 17447922 (Version 3)
Quarter: 2020Q3

REPORT INFORMATION
  Report Type: Report from Study
  Country: IT (occurrence: IT)
  Receive Date: 20200222
  Receipt Date: 20200717
  Transmission Date: 20201102
  Serious: Yes (Hospitalization)
  Sender: FDA-Public Use
  Company Number: IT-ACCORD-173169

PATIENT
  Age: 73 Year
  Sex: Female

DRUGS (3)
  1. QUETIAPINE. [Suspect]
     Active Substance: QUETIAPINE
     Indication: PRODUCT USED FOR UNKNOWN INDICATION
     Route: 048
  2. LORAZEPAM. [Suspect]
     Active Substance: LORAZEPAM
     Indication: INSOMNIA
     Route: 048
  3. DELORAZEPAM [Suspect]
     Active Substance: DELORAZEPAM
     Indication: INSOMNIA
     Route: 048

REACTIONS (3)
  - Loss of consciousness [Recovered/Resolved]
  - Speech disorder [Recovered/Resolved]
  - Drug abuse [Unknown]

NARRATIVE: CASE EVENT DATE: 20200115
